FAERS Safety Report 14368370 (Version 1)
Quarter: 2018Q1

REPORT INFORMATION
  Report Type: Report from Study
  Country: GB (occurrence: GB)
  Receive Date: 20180109
  Receipt Date: 20180109
  Transmission Date: 20180509
  Serious: Yes (Hospitalization)
  Sender: FDA-Public Use
  Company Number: GB-GILEAD-2017-0295543

PATIENT
  Age: 32 Year
  Sex: Male
  Weight: 69.6 kg

DRUGS (5)
  1. IDELALISIB [Suspect]
     Active Substance: IDELALISIB
     Dosage: 100 MG, QD
     Route: 048
     Dates: start: 20170928, end: 20171017
  2. TIRABRUTINIB [Suspect]
     Active Substance: TIRABRUTINIB
     Dosage: 80 MG, QD
     Route: 048
     Dates: start: 20170928, end: 20171017
  3. IDELALISIB [Suspect]
     Active Substance: IDELALISIB
     Indication: HAEMATOLOGICAL MALIGNANCY
     Dosage: 100 MG, QD
     Route: 048
     Dates: start: 20170920, end: 20170924
  4. TIRABRUTINIB [Suspect]
     Active Substance: TIRABRUTINIB
     Indication: HAEMATOLOGICAL MALIGNANCY
     Dosage: 80 MG, QD
     Route: 048
     Dates: start: 20170919, end: 20170924
  5. ACICLOVIR [Concomitant]
     Active Substance: ACYCLOVIR
     Indication: PROPHYLAXIS
     Route: 048
     Dates: start: 20170919

REACTIONS (1)
  - Cellulitis [Recovered/Resolved]

NARRATIVE: CASE EVENT DATE: 20170925
